FAERS Safety Report 4349305-3 (Version None)
Quarter: 2004Q2

REPORT INFORMATION
  Report Type: 
  Country: None (occurrence: None)
  Receive Date: 20040428
  Receipt Date: 20040423
  Transmission Date: 20050107
  Serious: Yes (Hospitalization)
  Sender: FDA-Public Use
  Company Number: IT-BRISTOL-MYERS SQUIBB COMPANY-12570164

PATIENT
  Age: 59 Year
  Sex: Female

DRUGS (4)
  1. QUESTRAN [Suspect]
     Indication: HYPERCHOLESTEROLAEMIA
     Route: 048
     Dates: start: 20031101, end: 20040408
  2. ANAFRANIL [Concomitant]
  3. SERENASE [Concomitant]
  4. LORAZEPAM [Concomitant]

REACTIONS (3)
  - FALL [None]
  - OPEN FRACTURE [None]
  - SYNCOPE [None]
